FAERS Safety Report 7893750-6 (Version None)
Quarter: 2011Q4

REPORT INFORMATION
  Report Type: 
  Country: None (occurrence: None)
  Receive Date: 20111104
  Receipt Date: 20111102
  Transmission Date: 20120403
  Serious: Yes (Life-Threatening, Other)
  Sender: FDA-Public Use
  Company Number: PHHY2011GB96743

PATIENT
  Age: 54 Year
  Sex: Male

DRUGS (12)
  1. RIFAMPIN [Suspect]
     Indication: POSTOPERATIVE WOUND INFECTION
     Dosage: 300 MG, BID
     Route: 042
     Dates: start: 20110817, end: 20110926
  2. ASPIRIN [Concomitant]
     Dosage: UNK
  3. ACETAMINOPHEN AND CODEINE PHOSPHATE [Concomitant]
  4. RAMIPRIL [Concomitant]
  5. GLICLAZIDE [Concomitant]
  6. TEICOPLANIN [Suspect]
     Indication: POSTOPERATIVE WOUND INFECTION
     Dosage: 600 MG, UNK
     Route: 042
     Dates: start: 20110908, end: 20110926
  7. ATORVASTATIN [Concomitant]
  8. PIPERACILLIN AND TAZOBACTAM [Concomitant]
  9. METFORMIN HCL [Concomitant]
  10. AMLODIPINE [Concomitant]
  11. CITALOPRAM HYDROBROMIDE [Concomitant]
  12. LIRAGLUTIDE [Concomitant]

REACTIONS (5)
  - THROMBOCYTOPENIA [None]
  - NEUTROPENIC SEPSIS [None]
  - NEUTROPENIA [None]
  - DISSEMINATED INTRAVASCULAR COAGULATION [None]
  - RASH [None]
